FAERS Safety Report 4278256-8 (Version None)
Quarter: 2004Q1

REPORT INFORMATION
  Report Type: 
  Country: None (occurrence: None)
  Receive Date: 20040121
  Receipt Date: 20040107
  Transmission Date: 20041129
  Serious: Yes (Other)
  Sender: FDA-Public Use
  Company Number: JP_040102466

PATIENT
  Age: 6 Year
  Sex: Male

DRUGS (1)
  1. SOMATROPIN [Suspect]
     Indication: BODY HEIGHT BELOW NORMAL
     Dosage: 0.25 MG/KG/WEEK

REACTIONS (3)
  - ADENOIDAL HYPERTROPHY [None]
  - OBSTRUCTIVE AIRWAYS DISORDER [None]
  - SLEEP APNOEA SYNDROME [None]
